FAERS Safety Report 20894459 (Version 2)
Quarter: 2022Q3

REPORT INFORMATION
  Report Type: Spontaneous
  Country: JP (occurrence: JP)
  Receive Date: 20220531
  Receipt Date: 20220806
  Transmission Date: 20221027
  Serious: Yes (Death, Other)
  Sender: FDA-Public Use
  Company Number: JP-AMGEN-JPNSP2022093834

PATIENT
  Age: 55 Year
  Sex: Female

DRUGS (6)
  1. BLINATUMOMAB [Suspect]
     Active Substance: BLINATUMOMAB
     Indication: Acute lymphocytic leukaemia
     Dosage: UNK
     Route: 065
  2. FLUDARABINE [Concomitant]
     Active Substance: FLUDARABINE PHOSPHATE
     Dosage: 120 MILLIGRAM/M2
  3. MELPHALAN [Concomitant]
     Active Substance: MELPHALAN
     Dosage: 80 MILLIGRAM/M2
  4. TACROLIMUS [Concomitant]
     Active Substance: TACROLIMUS
  5. METHOTREXATE [Concomitant]
     Active Substance: METHOTREXATE
     Dosage: 5 MILLIGRAM
  6. PREDNISOLONE [Concomitant]
     Active Substance: PREDNISOLONE
     Dosage: 0.6 MILLIGRAM

REACTIONS (5)
  - Progressive multifocal leukoencephalopathy [Unknown]
  - Locked-in syndrome [Unknown]
  - Acute graft versus host disease in skin [Recovering/Resolving]
  - Blood immunoglobulin G decreased [Unknown]
  - Pneumonia aspiration [Fatal]
